FAERS Safety Report 13189724 (Version 1)
Quarter: 2017Q1

REPORT INFORMATION
  Report Type: Spontaneous
  Country: AU (occurrence: AU)
  Receive Date: 20170206
  Receipt Date: 20170206
  Transmission Date: 20170428
  Serious: Yes (Hospitalization)
  Sender: FDA-Public Use
  Company Number: AU-INGENUS PHARMACEUTICALS NJ, LLC-ING201701-000040

PATIENT
  Age: 84 Year
  Sex: Male

DRUGS (12)
  1. PROBENECID AND COLCHICINE [Suspect]
     Active Substance: COLCHICINE\PROBENECID
     Indication: GOUT
  2. PREDNISOLONE. [Concomitant]
     Active Substance: PREDNISOLONE
     Indication: ASTHMA
  3. FLUTICASONE/SALMETEROL [Concomitant]
     Active Substance: FLUTICASONE PROPIONATE\SALMETEROL XINAFOATE
     Indication: ASTHMA
  4. EZETIMIBE. [Concomitant]
     Active Substance: EZETIMIBE
  5. OXYCODONE [Concomitant]
     Active Substance: OXYCODONE
  6. IRBESARTAN. [Concomitant]
     Active Substance: IRBESARTAN
  7. CLOPIDOGREL [Concomitant]
     Active Substance: CLOPIDOGREL BISULFATE
  8. RABEPRAZOLE [Concomitant]
     Active Substance: RABEPRAZOLE
  9. SIMVASTATIN. [Interacting]
     Active Substance: SIMVASTATIN
  10. AMLODIPINE [Concomitant]
     Active Substance: AMLODIPINE BESYLATE
  11. HYDROCHLOROTHIAZIDE. [Concomitant]
     Active Substance: HYDROCHLOROTHIAZIDE
  12. PROBENECID AND COLCHICINE [Interacting]
     Active Substance: COLCHICINE\PROBENECID

REACTIONS (3)
  - Drug interaction [Recovered/Resolved]
  - Functional gastrointestinal disorder [Recovered/Resolved]
  - Myopathy [Recovered/Resolved]
